FAERS Safety Report 8574511-1 (Version None)
Quarter: 2012Q3

REPORT INFORMATION
  Report Type: 
  Country: None (occurrence: None)
  Receive Date: 20120806
  Receipt Date: 20120806
  Transmission Date: 20120928
  Serious: Yes (Life-Threatening, Hospitalization, Other)
  Sender: FDA-Public Use
  Company Number: PHHO2011DE13926

PATIENT
  Sex: Female
  Weight: 66 kg

DRUGS (3)
  1. IMATINIB MESYLATE [Suspect]
     Indication: CHRONIC MYELOID LEUKAEMIA
     Dosage: 400 MG, QD
     Route: 048
     Dates: start: 20030908, end: 20110704
  2. IMATINIB MESYLATE [Suspect]
     Dosage: 400 MG, QD
     Route: 048
     Dates: start: 20110811
  3. PREDNISOLONE [Suspect]
     Indication: MUSCULOSKELETAL PAIN
     Dosage: UNK

REACTIONS (2)
  - PNEUMONIA [None]
  - OSTEOPOROTIC FRACTURE [None]
